FAERS Safety Report 12535451 (Version 5)
Quarter: 2016Q4

REPORT INFORMATION
  Report Type: Report from Study
  Country: FR (occurrence: FR)
  Receive Date: 20160707
  Receipt Date: 20161128
  Transmission Date: 20170207
  Serious: Yes (Hospitalization)
  Sender: FDA-Public Use
  Company Number: PHHY2016FR034431

PATIENT
  Age: 59 Year
  Sex: Female

DRUGS (1)
  1. TASIGNA [Suspect]
     Active Substance: NILOTINIB
     Indication: CHRONIC MYELOID LEUKAEMIA
     Dosage: 300 MG, BID
     Route: 048
     Dates: start: 20141114

REACTIONS (10)
  - Spondylitis [Recovered/Resolved]
  - Spinal compression fracture [Unknown]
  - Tendonitis [Unknown]
  - Back pain [Unknown]
  - Pruritus [Recovered/Resolved]
  - Spondylolisthesis [Unknown]
  - Retinal detachment [Recovered/Resolved]
  - Alopecia [Recovered/Resolved]
  - Eczema [Recovered/Resolved]
  - Urinary tract infection [Recovered/Resolved]

NARRATIVE: CASE EVENT DATE: 20141215
